FAERS Safety Report 4684194-9 (Version None)
Quarter: 2005Q2

REPORT INFORMATION
  Report Type: 
  Country: None (occurrence: None)
  Receive Date: 20050607
  Receipt Date: 20050527
  Transmission Date: 20051028
  Serious: Yes (Hospitalization)
  Sender: FDA-Public Use
  Company Number: FR-GLAXOSMITHKLINE-B0382647A

PATIENT
  Age: 60 Year
  Sex: Female
  Weight: 70 kg

DRUGS (15)
  1. DEROXAT [Suspect]
     Indication: ILL-DEFINED DISORDER
     Dosage: 20MG PER DAY
     Route: 048
     Dates: end: 20050507
  2. ZYLORIC [Suspect]
     Indication: ILL-DEFINED DISORDER
     Dosage: 300MG PER DAY
     Route: 048
     Dates: end: 20050428
  3. NEORAL [Suspect]
     Indication: ILL-DEFINED DISORDER
     Dosage: 100MG PER DAY
     Route: 048
  4. AREDIA [Suspect]
     Indication: ILL-DEFINED DISORDER
     Dosage: 60MG SINGLE DOSE
     Route: 042
     Dates: start: 20050426, end: 20050426
  5. NEORECORMON [Suspect]
     Indication: ILL-DEFINED DISORDER
     Dosage: 4000IU PER DAY
     Route: 042
     Dates: start: 20050426
  6. MOPRAL [Suspect]
     Indication: ILL-DEFINED DISORDER
     Dosage: 40MG PER DAY
     Route: 048
  7. LEVOTHYROX [Suspect]
     Indication: ILL-DEFINED DISORDER
     Dosage: 125MCG PER DAY
     Route: 048
  8. NEURONTIN [Suspect]
     Indication: ILL-DEFINED DISORDER
     Dosage: 300MG TWICE PER DAY
     Route: 048
  9. RIVOTRIL [Suspect]
     Indication: ILL-DEFINED DISORDER
     Dosage: 30DROP PER DAY
     Route: 048
  10. STILNOX [Suspect]
     Indication: ILL-DEFINED DISORDER
     Dosage: 10MG PER DAY
     Route: 048
  11. CALCIPARINE [Suspect]
     Indication: ILL-DEFINED DISORDER
     Route: 058
  12. CELLCEPT [Suspect]
     Indication: ILL-DEFINED DISORDER
     Dosage: 250MG PER DAY
     Route: 048
  13. PHOSPHONEUROS [Suspect]
     Indication: ILL-DEFINED DISORDER
     Route: 048
     Dates: start: 20050428, end: 20050510
  14. AMLOR [Suspect]
     Indication: ILL-DEFINED DISORDER
     Dosage: 5MG PER DAY
     Route: 048
     Dates: start: 20050427
  15. KENZEN [Suspect]
     Indication: ILL-DEFINED DISORDER
     Dosage: 4MG UNKNOWN
     Route: 048

REACTIONS (5)
  - CHILLS [None]
  - HYPERCALCAEMIA [None]
  - LEUKOCYTURIA [None]
  - PYELONEPHRITIS [None]
  - PYREXIA [None]
